FAERS Safety Report 6781704-2 (Version None)
Quarter: 2010Q2

REPORT INFORMATION
  Report Type: 
  Country: None (occurrence: None)
  Receive Date: 20100617
  Receipt Date: 20100617
  Transmission Date: 20101027
  Serious: No
  Sender: FDA-Public Use
  Company Number: None

PATIENT
  Age: 81 Year
  Sex: Female
  Weight: 60.782 kg

DRUGS (1)
  1. CATAPRES-TTS-1 [Suspect]
     Indication: SYSTOLIC HYPERTENSION
     Dosage: ONE PATCH ONCE A WEEK CUTANEOUS
     Route: 003
     Dates: start: 20100415, end: 20100605

REACTIONS (5)
  - APPLICATION SITE ERYTHEMA [None]
  - APPLICATION SITE PRURITUS [None]
  - APPLICATION SITE SWELLING [None]
  - APPLICATION SITE VESICLES [None]
  - PRODUCT QUALITY ISSUE [None]
